FAERS Safety Report 10388670 (Version 2)
Quarter: 2014Q3

REPORT INFORMATION
  Report Type: Spontaneous
  Country: IE (occurrence: IE)
  Receive Date: 20140816
  Receipt Date: 20140930
  Transmission Date: 20150326
  Serious: Yes (Other)
  Sender: FDA-Public Use
  Company Number: IE-ABBVIE-14K-229-1271057-00

PATIENT
  Age: 31 Year
  Sex: Female

DRUGS (1)
  1. HUMIRA [Suspect]
     Active Substance: ADALIMUMAB
     Indication: ANKYLOSING SPONDYLITIS
     Route: 058
     Dates: start: 20110927

REACTIONS (2)
  - Psoriasis [Recovered/Resolved]
  - Uveitis [Unknown]

NARRATIVE: CASE EVENT DATE: 201405
